FAERS Safety Report 4880852-1 (Version None)
Quarter: 2005Q4

REPORT INFORMATION
  Report Type: 
  Country: None (occurrence: None)
  Receive Date: 20051223
  Receipt Date: 20051031
  Transmission Date: 20060501
  Serious: No
  Sender: FDA-Public Use
  Company Number: 05P-163-0315963-00

PATIENT
  Age: 59 Year
  Sex: Female
  Weight: 95.5 kg

DRUGS (6)
  1. HUMIRA [Suspect]
     Indication: PSORIASIS
     Dosage: 40 MG, 1 IN 2 WK, SUBCUTANEOUS; SEE IMAGE
     Route: 058
     Dates: start: 20050101, end: 20050401
  2. HUMIRA [Suspect]
     Indication: PSORIASIS
     Dosage: 40 MG, 1 IN 2 WK, SUBCUTANEOUS; SEE IMAGE
     Route: 058
     Dates: start: 20050701, end: 20050901
  3. ALTOPREV [Suspect]
     Indication: HYPERCHOLESTEROLAEMIA
     Dosage: 60 MG, 1 IN 1 D, PER ORAL
     Route: 048
     Dates: start: 20050101
  4. METOPROLOL [Concomitant]
  5. COUMADIN [Concomitant]
  6. FUROSEMIDE [Concomitant]

REACTIONS (4)
  - ANOSMIA [None]
  - PAIN IN EXTREMITY [None]
  - PAROSMIA [None]
  - SINUSITIS [None]
